FAERS Safety Report 8907605 (Version 3)
Quarter: 2014Q1

REPORT INFORMATION
  Report Type: Spontaneous
  Country: US (occurrence: US)
  Receive Date: 20121113
  Receipt Date: 20140228
  Transmission Date: 20141002
  Serious: No
  Sender: FDA-Public Use
  Company Number: US-AMGEN-USASP2012010418

PATIENT
  Age: 61 Year
  Sex: Male
  Weight: 108.84 kg

DRUGS (7)
  1. ENBREL [Suspect]
     Indication: PRODUCT USED FOR UNKNOWN INDICATION
     Dosage: 50 MG/ML, QWK
     Route: 058
  2. PRANDIN                            /00882701/ [Concomitant]
     Dosage: 1 MG, UNK
  3. LANTUS [Concomitant]
     Dosage: UNK
  4. NOVOLOG [Concomitant]
     Dosage: UNK
  5. LOSARTAN HCT [Concomitant]
     Dosage: 100-25
  6. METFORMIN [Concomitant]
     Dosage: 500 MG, UNK
  7. FISH OIL [Concomitant]
     Dosage: UNK

REACTIONS (3)
  - Cough [Unknown]
  - Nasopharyngitis [Unknown]
  - Upper respiratory tract infection [Unknown]
